FAERS Safety Report 4657253-4 (Version None)
Quarter: 2005Q2

REPORT INFORMATION
  Report Type: 
  Country: None (occurrence: None)
  Receive Date: 20050408
  Receipt Date: 20050211
  Transmission Date: 20051028
  Serious: No
  Sender: FDA-Public Use
  Company Number: 230536K05USA

PATIENT
  Age: 47 Year
  Sex: Female

DRUGS (2)
  1. REBIF [Suspect]
     Indication: MULTIPLE SCLEROSIS
     Dosage: 8.8 MCG, 3 IN 1 WEEKS, SUBCUTANEOUS
     Route: 058
     Dates: start: 20050126
  2. MEDICATION FOR RESTLESS SLEEPING(ALL OTHER THERAPEUTIC PRODUCTS) [Concomitant]

REACTIONS (4)
  - AMENORRHOEA [None]
  - INJECTION SITE ERYTHEMA [None]
  - METRORRHAGIA [None]
  - STRESS [None]
